FAERS Safety Report 17415558 (Version 6)
Quarter: 2020Q2

REPORT INFORMATION
  Report Type: Report from Study
  Country: US (occurrence: US)
  Receive Date: 20200213
  Receipt Date: 20200520
  Transmission Date: 20200713
  Serious: Yes (Other)
  Sender: FDA-Public Use
  Company Number: NVSC2020US033186

PATIENT
  Sex: Female

DRUGS (2)
  1. BEOVU [Suspect]
     Active Substance: BROLUCIZUMAB-DBLL
     Dosage: UNK
     Route: 047
  2. BEOVU [Suspect]
     Active Substance: BROLUCIZUMAB-DBLL
     Indication: NEOVASCULAR AGE-RELATED MACULAR DEGENERATION
     Dosage: UNK, OTHER (ONE SINGLE DOSE)
     Route: 047

REACTIONS (13)
  - Nervousness [Unknown]
  - Intraocular pressure increased [Unknown]
  - Nausea [Unknown]
  - Malaise [Unknown]
  - Anxiety [Unknown]
  - Glaucoma [Unknown]
  - Myocardial infarction [Unknown]
  - Deafness [Unknown]
  - Cerebrovascular accident [Unknown]
  - Macular degeneration [Not Recovered/Not Resolved]
  - Blood pressure abnormal [Unknown]
  - Visual impairment [Unknown]
  - Drug ineffective [Unknown]
